FAERS Safety Report 26057981 (Version 1)
Quarter: 2025Q4

REPORT INFORMATION
  Report Type: Spontaneous
  Country: EU (occurrence: EU)
  Receive Date: 20251118
  Receipt Date: 20251118
  Transmission Date: 20260118
  Serious: Yes (Hospitalization)
  Sender: JOHNSON AND JOHNSON
  Company Number: None

PATIENT
  Age: 58 Year
  Sex: Female
  Weight: 58 kg

DRUGS (1)
  1. AMIVANTAMAB [Suspect]
     Active Substance: AMIVANTAMAB
     Indication: Lung neoplasm malignant
     Dosage: 1600 MG SOTTOCUTE SETTIMANALE
     Route: 058
     Dates: start: 20251106, end: 20251106

REACTIONS (7)
  - Feeling hot [Recovering/Resolving]
  - Cold flash [Recovering/Resolving]
  - Cyanosis [Recovering/Resolving]
  - Hypotension [Recovering/Resolving]
  - Tachycardia [Recovering/Resolving]
  - Pyrexia [Recovering/Resolving]
  - PO2 decreased [Recovering/Resolving]

NARRATIVE: CASE EVENT DATE: 20251106
